FAERS Safety Report 22142372 (Version 2)
Quarter: 2023Q2

REPORT INFORMATION
  Report Type: Report from Study
  Country: US (occurrence: US)
  Receive Date: 20230327
  Receipt Date: 20230505
  Transmission Date: 20230722
  Serious: No
  Sender: FDA-Public Use
  Company Number: US-TAIHOP-2023-002074

PATIENT
  Age: 58 Year
  Sex: Male
  Weight: 122.92 kg

DRUGS (1)
  1. LONSURF [Suspect]
     Active Substance: TIPIRACIL HYDROCHLORIDE\TRIFLURIDINE
     Indication: Colon cancer
     Dosage: CURRENT CYCLE UNKNOWN
     Route: 048
     Dates: start: 20221024

REACTIONS (1)
  - Disease progression [Unknown]
